FAERS Safety Report 7460242-8 (Version None)
Quarter: 2011Q2

REPORT INFORMATION
  Report Type: 
  Country: None (occurrence: None)
  Receive Date: 20110505
  Receipt Date: 20110427
  Transmission Date: 20111010
  Serious: Yes (Other)
  Sender: FDA-Public Use
  Company Number: FR-ROCHE-774230

PATIENT
  Age: 70 Year
  Sex: Female

DRUGS (1)
  1. HERCEPTIN [Suspect]
     Route: 065

REACTIONS (1)
  - PERICARDIAL EFFUSION [None]
